FAERS Safety Report 8772577 (Version 1)
Quarter: 2012Q4

REPORT INFORMATION
  Report Type: 
  Country: US (occurrence: US)
  Receive Date: 20120905
  Receipt Date: 20120905
  Transmission Date: 20130627
  Serious: No
  Sender: FDA-Public Use
  Company Number: US-009507513-1207USA012060

PATIENT

DRUGS (2)
  1. VICTRELIS [Suspect]
     Dosage: 800 mg, tid
     Route: 048
  2. PEGINTERFERON ALFA-2A [Suspect]
     Dosage: 150 Microgram, qw
     Route: 058

REACTIONS (2)
  - Neutropenia [Unknown]
  - Asthenia [Unknown]
